FAERS Safety Report 5893012-2 (Version None)
Quarter: 2008Q3

REPORT INFORMATION
  Report Type: 
  Country: None (occurrence: None)
  Receive Date: 20080923
  Receipt Date: 20080711
  Transmission Date: 20090109
  Serious: No
  Sender: FDA-Public Use
  Company Number: US-ASTRAZENECA-2007UW02499

PATIENT
  Age: 725 Month
  Sex: Male
  Weight: 127.3 kg

DRUGS (15)
  1. SEROQUEL [Suspect]
     Indication: SCHIZOPHRENIA, PARANOID TYPE
     Route: 048
     Dates: start: 20030801, end: 20040101
  2. SEROQUEL [Suspect]
     Indication: DEPRESSION
     Route: 048
     Dates: start: 20030801, end: 20040101
  3. RISPERDAL [Concomitant]
  4. ZYPREXA [Concomitant]
  5. CLONAZEPAM [Concomitant]
  6. NEURONTIN [Concomitant]
  7. FLUVOXAMINE MALEATE [Concomitant]
  8. HYDROCHLOROTHIAZIDE [Concomitant]
  9. NABUMETONE [Concomitant]
  10. OPTIVAR [Concomitant]
  11. VIGAMOX [Concomitant]
  12. TRIGLIDE [Concomitant]
  13. FLOMAX [Concomitant]
  14. PROBENECID [Concomitant]
  15. NAPROXEN [Concomitant]

REACTIONS (3)
  - BACK PAIN [None]
  - POLYP [None]
  - TYPE 2 DIABETES MELLITUS [None]
